FAERS Safety Report 22109766 (Version 2)
Quarter: 2023Q2

REPORT INFORMATION
  Report Type: Report from Study
  Country: BE (occurrence: BE)
  Receive Date: 20230317
  Receipt Date: 20230405
  Transmission Date: 20230722
  Serious: Yes (Hospitalization)
  Sender: FDA-Public Use
  Company Number: BE-EORTC-004810

PATIENT
  Age: 75 Year
  Sex: Female
  Weight: 60.5 kg

DRUGS (2)
  1. PALBOCICLIB [Suspect]
     Active Substance: PALBOCICLIB
     Indication: Hormone receptor positive breast cancer
     Dosage: 125 MG, CYCLIC (ONCE A DAY ORALLY FOR 21 DAYS, FOLLOWED BY 7 DAYS OFF TREATMENT)
     Route: 048
     Dates: start: 20221107, end: 20221225
  2. LETROZOLE [Concomitant]
     Active Substance: LETROZOLE
     Indication: Hormone receptor positive breast cancer
     Dosage: 2.5 MG, 1X/DAY
     Route: 048
     Dates: start: 20220919

REACTIONS (1)
  - Clostridium difficile infection [Recovered/Resolved]

NARRATIVE: CASE EVENT DATE: 20230116
